FAERS Safety Report 5593767-0 (Version None)
Quarter: 2007Q4

REPORT INFORMATION
  Report Type: 
  Country: None (occurrence: None)
  Receive Date: 20071218
  Receipt Date: 20070829
  Transmission Date: 20080405
  Serious: Yes (Hospitalization, Other)
  Sender: FDA-Public Use
  Company Number: 2006151182

PATIENT
  Age: 63 Year
  Sex: Male
  Weight: 83.9 kg

DRUGS (14)
  1. BEXTRA [Suspect]
     Indication: OSTEOARTHRITIS
     Dosage: 20 MG (20 MG,1 IN 1 D),ORAL
     Route: 048
     Dates: start: 20040325
  2. BEXTRA [Suspect]
     Indication: PAIN
     Dosage: 20 MG (20 MG,1 IN 1 D),ORAL
     Route: 048
     Dates: start: 20040325
  3. NEXIUM [Concomitant]
  4. ULTRAM [Concomitant]
  5. FLEXERIL [Concomitant]
  6. SYNTHROID [Concomitant]
  7. LISINOPRIL [Concomitant]
  8. NEURONTIN [Concomitant]
  9. VIAGRA [Concomitant]
  10. ADVAIR DISKUS 100/50 [Concomitant]
  11. ACETYLSALICYLIC ACID SRT [Concomitant]
  12. FOLIC ACID [Concomitant]
  13. PLAVIX [Concomitant]
  14. TOPROL-XL [Concomitant]

REACTIONS (2)
  - DEPRESSION [None]
  - MYOCARDIAL INFARCTION [None]
